FAERS Safety Report 9765101 (Version 1)
Quarter: 2013Q4

REPORT INFORMATION
  Report Type: Spontaneous
  Country: US (occurrence: None)
  Receive Date: 20131213
  Receipt Date: 20131213
  Transmission Date: 20140711
  Serious: Yes (Other)
  Sender: FDA-Public Use
  Company Number: 2013SA028089

PATIENT
  Sex: Female

DRUGS (1)
  1. MENTHOL/ZINC OXIDE [Suspect]
     Indication: FUNGAL INFECTION
     Route: 061

REACTIONS (2)
  - Application site pain [None]
  - Application site vesicles [None]
